FAERS Safety Report 26075389 (Version 1)
Quarter: 2025Q4

REPORT INFORMATION
  Report Type: Spontaneous
  Country: LB (occurrence: LB)
  Receive Date: 20251121
  Receipt Date: 20251121
  Transmission Date: 20260118
  Serious: Yes (Other)
  Sender: ACCORD
  Company Number: LB-Accord-513691

PATIENT
  Age: 16 Year
  Sex: Male

DRUGS (9)
  1. CISPLATIN [Suspect]
     Active Substance: CISPLATIN
     Indication: Medulloblastoma
     Dosage: DURING MAINTENANCE; RECEIVED 8 CYCLES
     Dates: start: 202111, end: 202212
  2. ETOPOSIDE [Suspect]
     Active Substance: ETOPOSIDE
     Indication: Medulloblastoma
     Dosage: 50 MG/M2/DAY PO, DIVIDED BID
     Route: 048
     Dates: start: 202306, end: 202308
  3. IRINOTECAN [Suspect]
     Active Substance: IRINOTECAN
     Indication: Medulloblastoma
     Dosage: RECEIVED 2 CYCLES; EVERY 21 DAYS
     Dates: start: 202407
  4. TEMOZOLOMIDE [Suspect]
     Active Substance: TEMOZOLOMIDE
     Indication: Medulloblastoma
     Dosage: 90 MG/M2/DAY PO, DIVIDED BID
     Route: 048
     Dates: start: 202306, end: 202308
  5. BEVACIZUMAB [Suspect]
     Active Substance: BEVACIZUMAB
     Indication: Medulloblastoma
     Dosage: RECEIVED 2 CYCLES; EVERY 21 DAYS
     Dates: start: 202407
  6. VINCRISTINE [Suspect]
     Active Substance: VINCRISTINE
     Indication: Medulloblastoma
     Dosage: DURING RADIOTHERAPY
     Dates: start: 202109, end: 202111
  7. CYCLOPHOSPHAMIDE [Suspect]
     Active Substance: CYCLOPHOSPHAMIDE
     Indication: Medulloblastoma
     Dosage: 2.5 MG/KG/DAY PO, DIVIDED BID
     Route: 048
     Dates: start: 202306, end: 202308
  8. TEMOZOLOMIDE [Suspect]
     Active Substance: TEMOZOLOMIDE
     Indication: Medulloblastoma
     Dosage: RECEIVED 2 CYCLES; EVERY 21 DAYS
     Dates: start: 202407
  9. VINCRISTINE [Suspect]
     Active Substance: VINCRISTINE
     Indication: Medulloblastoma
     Dosage: DURING MAINTENANCE; RECEIVED 8 CYCLES
     Dates: start: 202111, end: 202212

REACTIONS (1)
  - Acute myeloid leukaemia [Recovering/Resolving]

NARRATIVE: CASE EVENT DATE: 20241101
